FAERS Safety Report 5931005-7 (Version None)
Quarter: 2008Q4

REPORT INFORMATION
  Report Type: 
  Country: None (occurrence: None)
  Receive Date: 20081022
  Receipt Date: 20081013
  Transmission Date: 20090506
  Serious: Yes (Hospitalization, Other)
  Sender: FDA-Public Use
  Company Number: 2008BI024843

PATIENT
  Age: 28 Year
  Sex: Female

DRUGS (3)
  1. TYSABRI [Suspect]
     Indication: MULTIPLE SCLEROSIS
     Dosage: IV
     Route: 042
     Dates: start: 20080220
  2. SYNTHROID [Concomitant]
  3. BETASERON [Concomitant]

REACTIONS (2)
  - ERYTHEMA [None]
  - TONGUE NEOPLASM MALIGNANT STAGE UNSPECIFIED [None]
